FAERS Safety Report 7959306-1 (Version None)
Quarter: 2011Q4

REPORT INFORMATION
  Report Type: 
  Country: None (occurrence: None)
  Receive Date: 20111206
  Receipt Date: 20111205
  Transmission Date: 20120403
  Serious: Yes (Other)
  Sender: FDA-Public Use
  Company Number: US-PFIZER INC-2011249267

PATIENT
  Sex: Male
  Weight: 64 kg

DRUGS (3)
  1. CHANTIX [Suspect]
     Dosage: 0.5 MG, 2X/DAY
     Route: 048
     Dates: start: 20111001, end: 20111010
  2. CHANTIX [Suspect]
     Indication: SMOKING CESSATION THERAPY
     Dosage: 0.5 MG, 1X/DAY
     Route: 048
     Dates: start: 20111002, end: 20111001
  3. NAPROXEN [Concomitant]
     Dosage: UNK

REACTIONS (5)
  - COGNITIVE DISORDER [None]
  - NAUSEA [None]
  - IRRITABILITY [None]
  - CONFUSIONAL STATE [None]
  - DIZZINESS [None]
